FAERS Safety Report 14163855 (Version 1)
Quarter: 2017Q4

REPORT INFORMATION
  Report Type: Spontaneous
  Country: US (occurrence: US)
  Receive Date: 20171107
  Receipt Date: 20171107
  Transmission Date: 20180321
  Serious: No
  Sender: FDA-Public Use
  Company Number: US-009507513-1710USA007615

PATIENT

DRUGS (5)
  1. AMLODIPINE BESYLATE. [Concomitant]
     Active Substance: AMLODIPINE BESYLATE
  2. LASIX [Concomitant]
     Active Substance: FUROSEMIDE
  3. ZEPATIER [Suspect]
     Active Substance: ELBASVIR\GRAZOPREVIR
     Indication: HEPATITIS C
     Dosage: 1 TABLET (50/100 MG) EVERY DAY
     Route: 048
     Dates: start: 201709
  4. IBUPROFEN. [Concomitant]
     Active Substance: IBUPROFEN
  5. ZOFRAN [Concomitant]
     Active Substance: ONDANSETRON HYDROCHLORIDE

REACTIONS (2)
  - Nausea [Unknown]
  - Constipation [Unknown]

NARRATIVE: CASE EVENT DATE: 2017
